FAERS Safety Report 4417314-1 (Version None)
Quarter: 2004Q2

REPORT INFORMATION
  Report Type: 
  Country: None (occurrence: None)
  Receive Date: 20040629
  Receipt Date: 20040415
  Transmission Date: 20050107
  Serious: Yes (Hospitalization)
  Sender: FDA-Public Use
  Company Number: US_010972959

PATIENT
  Age: 55 Year
  Sex: Female
  Weight: 114 kg

DRUGS (7)
  1. HUMULIN 70/30 [Suspect]
     Indication: DIABETES MELLITUS
     Dosage: 70 U/2 DAY
     Dates: start: 20000801
  2. HUMALOG [Suspect]
     Indication: DIABETES MELLITUS
     Dates: start: 20000807
  3. HUMULIN-HUMAN INSULIN (RDNA) (HUMAN INSULIN [Suspect]
     Indication: DIABETES MELLITUS
  4. IBUPROFEN [Concomitant]
  5. PSEUDOEPHEDRINE HCL [Concomitant]
  6. GUAIFENESIN [Concomitant]
  7. DICYCLOMINE HYDROCHLORIDE [Concomitant]

REACTIONS (12)
  - ABDOMINAL PAIN UPPER [None]
  - ARTHRALGIA [None]
  - BLOOD GLUCOSE INCREASED [None]
  - DIARRHOEA [None]
  - FEELING ABNORMAL [None]
  - FLATULENCE [None]
  - LOCALISED OSTEOARTHRITIS [None]
  - MYOCARDIAL INFARCTION [None]
  - NAUSEA [None]
  - TRANSIENT ISCHAEMIC ATTACK [None]
  - WEIGHT DECREASED [None]
  - WEIGHT INCREASED [None]
